FAERS Safety Report 4837711-X (Version None)
Quarter: 2005Q4

REPORT INFORMATION
  Report Type: 
  Country: None (occurrence: None)
  Receive Date: 20051123
  Receipt Date: 20051123
  Transmission Date: 20060501
  Serious: Yes (Hospitalization)
  Sender: FDA-Public Use
  Company Number: None

PATIENT
  Age: 58 Year
  Sex: Female
  Weight: 77 kg

DRUGS (12)
  1. PHENYTOIN [Suspect]
     Indication: CONVULSION
     Dosage: 200MG Q12 PO  ; 100MG Q8 PO
     Route: 048
     Dates: start: 20050718, end: 20050722
  2. PHENYTOIN [Suspect]
     Indication: CONVULSION
     Dosage: 200MG Q12 PO  ; 100MG Q8 PO
     Route: 048
     Dates: start: 20050722, end: 20050724
  3. ACETAMINOPHEN [Concomitant]
  4. ASPIRIN [Concomitant]
  5. CLONIDINE [Concomitant]
  6. DOCUSATE [Concomitant]
  7. HEPARIN [Concomitant]
  8. GABAPENTIN [Concomitant]
  9. LANSOPRAZOLE [Concomitant]
  10. LISINOPRIL [Concomitant]
  11. METOPROLOL [Concomitant]
  12. SIMVASTATIN [Concomitant]

REACTIONS (6)
  - ANTICONVULSANT DRUG LEVEL INCREASED [None]
  - BALANCE DISORDER [None]
  - CONFUSIONAL STATE [None]
  - COORDINATION ABNORMAL [None]
  - FALL [None]
  - MEMORY IMPAIRMENT [None]
